FAERS Safety Report 11390230 (Version 1)
Quarter: 2015Q3

REPORT INFORMATION
  Report Type: Spontaneous
  Country: US (occurrence: US)
  Receive Date: 20150818
  Receipt Date: 20150818
  Transmission Date: 20151125
  Serious: No
  Sender: FDA-Public Use
  Company Number: US-ROCHE-1415217

PATIENT
  Sex: Female

DRUGS (4)
  1. INCIVEK [Suspect]
     Active Substance: TELAPREVIR
     Indication: CHRONIC HEPATITIS C
     Route: 065
     Dates: start: 20131121, end: 20140109
  2. PEGASYS [Suspect]
     Active Substance: PEGINTERFERON ALFA-2A
     Indication: CHRONIC HEPATITIS C
     Route: 058
     Dates: start: 20131121
  3. COPEGUS [Suspect]
     Active Substance: RIBAVIRIN
     Indication: CHRONIC HEPATITIS C
     Dosage: 1200 MG DAILY IN TWO DIVIDED DOSES
     Route: 048
     Dates: start: 20131121, end: 20140520
  4. PEGASYS [Suspect]
     Active Substance: PEGINTERFERON ALFA-2A
     Route: 065
     Dates: start: 2013, end: 20140520

REACTIONS (13)
  - Vision blurred [Recovered/Resolved]
  - Decreased appetite [Unknown]
  - Constipation [Unknown]
  - Dizziness [Unknown]
  - Weight decreased [Unknown]
  - Red blood cell count decreased [Unknown]
  - Eczema [Unknown]
  - Fatigue [Unknown]
  - Balance disorder [Unknown]
  - Haemoglobin decreased [Unknown]
  - Alopecia [Unknown]
  - Asthenia [Unknown]
  - Urinary tract infection [Unknown]
